FAERS Safety Report 23982781 (Version 1)
Quarter: 2024Q2

REPORT INFORMATION
  Report Type: Spontaneous
  Country: RO (occurrence: RO)
  Receive Date: 20240617
  Receipt Date: 20240617
  Transmission Date: 20240715
  Serious: Yes (Other)
  Sender: FDA-Public Use
  Company Number: RO-ROCHE-3577338

PATIENT
  Sex: Female

DRUGS (10)
  1. IMBRUVICA [Suspect]
     Active Substance: IBRUTINIB
     Indication: Mantle cell lymphoma
     Route: 048
     Dates: start: 20220801, end: 20220930
  2. PREDNISONE [Suspect]
     Active Substance: PREDNISONE
     Indication: Mantle cell lymphoma
     Route: 065
     Dates: start: 20210501, end: 20211001
  3. OXALIPLATIN [Suspect]
     Active Substance: OXALIPLATIN
     Indication: Mantle cell lymphoma
     Route: 065
     Dates: start: 20230801, end: 20231001
  4. ETOPOSIDE [Suspect]
     Active Substance: ETOPOSIDE
     Indication: Mantle cell lymphoma
     Route: 065
     Dates: start: 20221001, end: 20230301
  5. CYCLOPHOSPHAMIDE [Suspect]
     Active Substance: CYCLOPHOSPHAMIDE
     Indication: Mantle cell lymphoma
     Route: 065
     Dates: start: 20210501, end: 20211001
  6. VINCRISTINE SULFATE [Suspect]
     Active Substance: VINCRISTINE SULFATE
     Indication: Mantle cell lymphoma
     Route: 065
     Dates: start: 20210501, end: 20211001
  7. RITUXIMAB [Suspect]
     Active Substance: RITUXIMAB
     Indication: Mantle cell lymphoma
     Route: 065
     Dates: start: 20230801, end: 20231001
  8. RITUXIMAB [Suspect]
     Active Substance: RITUXIMAB
     Indication: Mantle cell lymphoma
     Route: 065
     Dates: start: 20210501, end: 20211001
  9. DOXORUBICIN HYDROCHLORIDE [Suspect]
     Active Substance: DOXORUBICIN HYDROCHLORIDE
     Indication: Mantle cell lymphoma
     Route: 065
     Dates: start: 20210501, end: 20211001
  10. GEMCITABINE HYDROCHLORIDE [Suspect]
     Active Substance: GEMCITABINE HYDROCHLORIDE
     Indication: Mantle cell lymphoma
     Route: 065
     Dates: start: 20230801, end: 20231001

REACTIONS (1)
  - Disease progression [Unknown]
